FAERS Safety Report 5524317-2 (Version None)
Quarter: 2007Q4

REPORT INFORMATION
  Report Type: 
  Country: None (occurrence: None)
  Receive Date: 20071121
  Receipt Date: 20071112
  Transmission Date: 20080405
  Serious: Yes (Other)
  Sender: FDA-Public Use
  Company Number: US-PFIZER INC-2007095589

PATIENT
  Sex: Male

DRUGS (1)
  1. CELEBREX [Suspect]
     Indication: KNEE OPERATION

REACTIONS (4)
  - HEART RATE INCREASED [None]
  - HYPERSENSITIVITY [None]
  - OESOPHAGEAL SPASM [None]
  - PRURITUS [None]
